FAERS Safety Report 13516539 (Version 2)
Quarter: 2017Q3

REPORT INFORMATION
  Report Type: Spontaneous
  Country: US (occurrence: US)
  Receive Date: 20170505
  Receipt Date: 20170918
  Transmission Date: 20171127
  Serious: Yes (Other)
  Sender: FDA-Public Use
  Company Number: US-RECKITT BENCKISER HEALTHCARE INT LIMITED-RB-85386-2017

PATIENT
  Age: 38 Year
  Sex: Female

DRUGS (1)
  1. MUCINEX [Suspect]
     Active Substance: GUAIFENESIN
     Indication: RESPIRATORY TRACT CONGESTION
     Dosage: 1 DF, SINGLE
     Route: 065
     Dates: start: 20170427

REACTIONS (7)
  - Urticaria [Not Recovered/Not Resolved]
  - Abdominal pain upper [Unknown]
  - Anaphylactic reaction [Not Recovered/Not Resolved]
  - Swelling [Unknown]
  - Lip swelling [Not Recovered/Not Resolved]
  - Peripheral swelling [Unknown]
  - Ear swelling [Not Recovered/Not Resolved]

NARRATIVE: CASE EVENT DATE: 20170427
